FAERS Safety Report 11928080 (Version 1)
Quarter: 2016Q1

REPORT INFORMATION
  Report Type: Spontaneous
  Country: DE (occurrence: DE)
  Receive Date: 20160119
  Receipt Date: 20160119
  Transmission Date: 20160526
  Serious: Yes (Other)
  Sender: FDA-Public Use
  Company Number: GXKR2016DE000536

PATIENT

DRUGS (3)
  1. MINPROSTIN [Concomitant]
     Active Substance: DINOPROSTONE
     Indication: LABOUR INDUCTION
     Route: 064
     Dates: start: 20151012, end: 20151012
  2. FLUOXETINE [Suspect]
     Active Substance: FLUOXETINE HYDROCHLORIDE
     Indication: DEPRESSION
     Dosage: 40 [MG/D (BIS 10 MG/D) ]/ REDUCTION SINCE JULY. 10 MG/D IN WEEK 35+3 DAYS.
     Route: 064
     Dates: start: 20150202, end: 20151008
  3. L-THYROXINE//LEVOTHYROXINE [Concomitant]
     Indication: AUTOIMMUNE THYROIDITIS
     Dosage: 100 [?G/D ]
     Route: 064
     Dates: start: 20150202, end: 20151006

REACTIONS (2)
  - Small for dates baby [Unknown]
  - Respiratory disorder neonatal [Recovered/Resolved]

NARRATIVE: CASE EVENT DATE: 20151012
